FAERS Safety Report 16245543 (Version 7)
Quarter: 2020Q4

REPORT INFORMATION
  Report Type: Spontaneous
  Country: JP (occurrence: JP)
  Receive Date: 20190426
  Receipt Date: 20201019
  Transmission Date: 20210113
  Serious: Yes (Life-Threatening, Hospitalization, Other)
  Sender: FDA-Public Use
  Company Number: JP-BRISTOL-MYERS SQUIBB COMPANY-BMS-2019-015784

PATIENT
  Age: 75 Year
  Sex: Male
  Weight: 52 kg

DRUGS (5)
  1. OPDIVO [Suspect]
     Active Substance: NIVOLUMAB
     Indication: GASTRIC CANCER
     Dosage: 240 MG
     Route: 041
     Dates: start: 20190109, end: 20190327
  2. OPDIVO [Suspect]
     Active Substance: NIVOLUMAB
     Dosage: 240 UNK
     Route: 041
     Dates: start: 20190201
  3. MIGLITOL. [Concomitant]
     Active Substance: MIGLITOL
     Indication: PRODUCT USED FOR UNKNOWN INDICATION
     Dosage: 1 DOSAGE FORM, Q8H
     Route: 048
  4. SUREPOST [Concomitant]
     Active Substance: REPAGLINIDE
     Indication: PRODUCT USED FOR UNKNOWN INDICATION
     Dosage: 0.5 MILLIGRAM, Q8H
     Route: 065
     Dates: start: 2019
  5. BAKTAR [Suspect]
     Active Substance: SULFAMETHOXAZOLE\TRIMETHOPRIM
     Indication: HEPATIC FUNCTION ABNORMAL
     Dosage: 1 GRAM
     Route: 065

REACTIONS (13)
  - Hypokalaemia [Recovering/Resolving]
  - Haemophagocytic lymphohistiocytosis [Not Recovered/Not Resolved]
  - Cellulitis [Recovered/Resolved]
  - Thyroid function test abnormal [Not Recovered/Not Resolved]
  - Hypothyroidism [Recovering/Resolving]
  - Latent autoimmune diabetes in adults [Recovered/Resolved]
  - Pancytopenia [Recovering/Resolving]
  - Septic shock [Recovered/Resolved]
  - Platelet count decreased [Recovering/Resolving]
  - Blast cells present [Unknown]
  - Hepatic function abnormal [Recovering/Resolving]
  - Disseminated intravascular coagulation [Recovered/Resolved]
  - Aplastic anaemia [Unknown]

NARRATIVE: CASE EVENT DATE: 20190206
